FAERS Safety Report 13573673 (Version 1)
Quarter: 2017Q2

REPORT INFORMATION
  Report Type: Spontaneous
  Country: US (occurrence: US)
  Receive Date: 20170523
  Receipt Date: 20170523
  Transmission Date: 20170830
  Serious: Yes (Disabling)
  Sender: FDA-Public Use
  Company Number: None

PATIENT
  Age: 66 Year
  Sex: Male
  Weight: 86.26 kg

DRUGS (8)
  1. BETA CAROTENE [Concomitant]
  2. FLAUTICASONE PROP. [Concomitant]
  3. L-LYSINE [Concomitant]
     Active Substance: LYSINE
  4. METTOPROLOL FR SUCCINATE ZOLPIDEN [Concomitant]
  5. SYMBICORT [Concomitant]
     Active Substance: BUDESONIDE\FORMOTEROL FUMARATE DIHYDRATE
  6. MULTIPRIDE FORMULA VITAMIN [Concomitant]
  7. METOPROLOL TARTRATE. [Suspect]
     Active Substance: METOPROLOL TARTRATE
     Indication: HYPERTENSION
     Route: 048
     Dates: start: 2015, end: 201705
  8. OMEGA 3 FISH OIL [Concomitant]
     Active Substance: FISH OIL\OMEGA-3 FATTY ACIDS

REACTIONS (1)
  - Glaucoma [None]

NARRATIVE: CASE EVENT DATE: 20170329
